FAERS Safety Report 7769457-2 (Version None)
Quarter: 2011Q3

REPORT INFORMATION
  Report Type: 
  Country: None (occurrence: None)
  Receive Date: 20110922
  Receipt Date: 20110720
  Transmission Date: 20111222
  Serious: No
  Sender: FDA-Public Use
  Company Number: US-ASTRAZENECA-2011SE43739

PATIENT
  Sex: Female

DRUGS (10)
  1. CLONAZEPAM [Concomitant]
  2. FENOFIBRATE [Concomitant]
     Indication: HYPERCHOLESTEROLAEMIA
  3. LISINOPRIL [Concomitant]
  4. METOPROLOL TARTRATE [Concomitant]
  5. SIMVASTATIN [Concomitant]
  6. LEVOTHYROXINE SODIUM [Concomitant]
  7. PAROXETINE HCL [Concomitant]
  8. SEROQUEL [Suspect]
     Dosage: ONE TABLET EVERY MORNING, ONE TABLET IN THE AFTERNOON AND TWO TABLETS AT BEDTIME
     Route: 048
     Dates: start: 20110131
  9. LEVAQUIN [Concomitant]
  10. QVAR 40 [Concomitant]

REACTIONS (1)
  - SINUS OPERATION [None]
